FAERS Safety Report 19506879 (Version 1)
Quarter: 2021Q3

REPORT INFORMATION
  Report Type: Spontaneous
  Country: US (occurrence: US)
  Receive Date: 20210708
  Receipt Date: 20210708
  Transmission Date: 20211014
  Serious: Yes (Other)
  Sender: FDA-Public Use
  Company Number: US-GLAXOSMITHKLINE-US2021GSK143752

PATIENT
  Sex: Female

DRUGS (18)
  1. ZANTAC [Suspect]
     Active Substance: RANITIDINE HYDROCHLORIDE
     Indication: SINUS PAIN
  2. ZANTAC [Suspect]
     Active Substance: RANITIDINE HYDROCHLORIDE
     Indication: HIATUS HERNIA
  3. RANITIDINE. [Suspect]
     Active Substance: RANITIDINE
     Indication: HIATUS HERNIA
  4. RANITIDINE CAPSULE [Suspect]
     Active Substance: RANITIDINE
     Indication: MULTIPLE ALLERGIES
     Dosage: 150 MG, QD
     Route: 065
     Dates: start: 199001, end: 202104
  5. RANITIDINE. [Suspect]
     Active Substance: RANITIDINE
     Indication: SINUS PAIN
  6. ZANTAC [Suspect]
     Active Substance: RANITIDINE HYDROCHLORIDE
     Indication: SINUS PAIN
  7. RANITIDINE CAPSULE [Suspect]
     Active Substance: RANITIDINE
     Indication: SINUS PAIN
  8. RANITIDINE. [Suspect]
     Active Substance: RANITIDINE
     Indication: MULTIPLE ALLERGIES
     Dosage: 150 MG, QD
     Route: 065
     Dates: start: 199001, end: 202104
  9. ZANTAC [Suspect]
     Active Substance: RANITIDINE HYDROCHLORIDE
     Indication: MULTIPLE ALLERGIES
     Dosage: 150 MG, QD
     Route: 065
     Dates: start: 199001, end: 202104
  10. ZANTAC [Suspect]
     Active Substance: RANITIDINE HYDROCHLORIDE
     Indication: HIATUS HERNIA
  11. ZANTAC [Suspect]
     Active Substance: RANITIDINE HYDROCHLORIDE
     Indication: MULTIPLE ALLERGIES
     Dosage: 150 MG, QD
     Route: 065
     Dates: start: 199001, end: 202104
  12. RANITIDINE CAPSULE [Suspect]
     Active Substance: RANITIDINE
     Indication: HIATUS HERNIA
  13. RANITIDINE. [Suspect]
     Active Substance: RANITIDINE
     Indication: SINUS PAIN
  14. RANITIDINE. [Suspect]
     Active Substance: RANITIDINE
     Indication: MULTIPLE ALLERGIES
     Dosage: 150 MG, QD
     Route: 065
     Dates: start: 199001, end: 202104
  15. RANITIDINE. [Suspect]
     Active Substance: RANITIDINE
     Indication: HIATUS HERNIA
  16. RANITIDINE. [Suspect]
     Active Substance: RANITIDINE
     Indication: MULTIPLE ALLERGIES
     Dosage: 150 MG, QD
     Route: 065
     Dates: start: 199001, end: 202104
  17. RANITIDINE. [Suspect]
     Active Substance: RANITIDINE
     Indication: SINUS PAIN
  18. RANITIDINE. [Suspect]
     Active Substance: RANITIDINE
     Indication: HIATUS HERNIA

REACTIONS (1)
  - Breast cancer [Unknown]
